FAERS Safety Report 11645457 (Version 1)
Quarter: 2015Q4

REPORT INFORMATION
  Report Type: Spontaneous
  Country: US (occurrence: US)
  Receive Date: 20151020
  Receipt Date: 20151020
  Transmission Date: 20160304
  Serious: Yes (Hospitalization, Other)
  Sender: FDA-Public Use
  Company Number: US-PFIZER INC-2015348314

PATIENT
  Age: 72 Year
  Sex: Female
  Weight: 52.15 kg

DRUGS (1)
  1. DILANTIN [Suspect]
     Active Substance: PHENYTOIN
     Indication: CONVULSION PROPHYLAXIS
     Dosage: UNK

REACTIONS (2)
  - Blood sodium decreased [Recovering/Resolving]
  - Cardiac failure congestive [Recovering/Resolving]
